FAERS Safety Report 24618263 (Version 1)
Quarter: 2024Q4

REPORT INFORMATION
  Report Type: Spontaneous
  Country: VN (occurrence: VN)
  Receive Date: 20241114
  Receipt Date: 20241114
  Transmission Date: 20250115
  Serious: Yes (Death, Hospitalization)
  Sender: ASTELLAS
  Company Number: VN-ASTELLAS-2024-AER-018365

PATIENT
  Age: 35 Year
  Sex: Male

DRUGS (3)
  1. TACROLIMUS [Suspect]
     Active Substance: TACROLIMUS
     Indication: Renal transplant
     Route: 065
  2. MYCOPHENOLATE MOFETIL [Concomitant]
     Active Substance: MYCOPHENOLATE MOFETIL
     Indication: Renal transplant
     Route: 065
  3. PREDNISOLONE [Concomitant]
     Active Substance: PREDNISOLONE
     Indication: Renal transplant
     Route: 065

REACTIONS (3)
  - Varicella [Fatal]
  - Disseminated intravascular coagulation [Fatal]
  - Pneumonia [Fatal]
